FAERS Safety Report 9838662 (Version 1)
Quarter: 2013Q4

REPORT INFORMATION
  Report Type: Spontaneous
  Country: US (occurrence: None)
  Receive Date: 20131206
  Receipt Date: 20131206
  Transmission Date: 20140711
  Serious: Yes (Hospitalization)
  Sender: FDA-Public Use
  Company Number: 387600

PATIENT
  Age: 22 Year
  Sex: Female

DRUGS (1)
  1. NOVOLOG [Suspect]
     Route: 058

REACTIONS (2)
  - Wrong technique in drug usage process [None]
  - Blood glucose increased [None]
